FAERS Safety Report 10681017 (Version 9)
Quarter: 2015Q1

REPORT INFORMATION
  Report Type: Report from Study
  Country: US (occurrence: US)
  Receive Date: 20141229
  Receipt Date: 20150325
  Transmission Date: 20150720
  Serious: Yes (Hospitalization, Other)
  Sender: FDA-Public Use
  Company Number: US-SA-2014SA172070

PATIENT
  Age: 52 Year
  Sex: Female
  Weight: 49.89 kg

DRUGS (8)
  1. VITAMIN B1 [Concomitant]
     Active Substance: THIAMINE HYDROCHLORIDE
  2. AUBAGIO [Suspect]
     Active Substance: TERIFLUNOMIDE
     Indication: MULTIPLE SCLEROSIS
     Route: 048
     Dates: start: 20141128
  3. AUBAGIO [Suspect]
     Active Substance: TERIFLUNOMIDE
     Indication: MULTIPLE SCLEROSIS
     Route: 048
     Dates: end: 20150315
  4. VITAMIN D [Concomitant]
     Active Substance: CHOLECALCIFEROL
  5. VITAMIN B12 [Concomitant]
     Active Substance: CYANOCOBALAMIN
  6. PLAQUENIL [Concomitant]
     Active Substance: HYDROXYCHLOROQUINE SULFATE
  7. VITAMIN E [Concomitant]
     Active Substance: .ALPHA.-TOCOPHEROL
  8. RECLAST [Concomitant]
     Active Substance: ZOLEDRONIC ACID
     Indication: BONE DENSITY ABNORMAL

REACTIONS (18)
  - Dyspepsia [Not Recovered/Not Resolved]
  - Arteriosclerosis [Unknown]
  - Blood pressure increased [Unknown]
  - Diarrhoea [Not Recovered/Not Resolved]
  - Palpitations [Unknown]
  - Bladder dilatation [Unknown]
  - Blood creatinine increased [Unknown]
  - Haematochezia [Unknown]
  - Swelling [Unknown]
  - Headache [Recovered/Resolved]
  - Condition aggravated [Unknown]
  - Blood potassium decreased [Unknown]
  - Body temperature decreased [Unknown]
  - Impaired gastric emptying [Not Recovered/Not Resolved]
  - Vomiting [Not Recovered/Not Resolved]
  - Abdominal pain upper [Not Recovered/Not Resolved]
  - Pain [Unknown]
  - Gingival swelling [Unknown]

NARRATIVE: CASE EVENT DATE: 2014
